FAERS Safety Report 5600297-6 (Version None)
Quarter: 2007Q4

REPORT INFORMATION
  Report Type: 
  Country: None (occurrence: None)
  Receive Date: 20071226
  Receipt Date: 20061121
  Transmission Date: 20080405
  Serious: Yes (Life-Threatening)
  Sender: FDA-Public Use
  Company Number: 239218

PATIENT
  Age: 59 Year
  Sex: Male

DRUGS (9)
  1. RAPTIVA [Suspect]
     Indication: PSORIASIS
     Dosage: 125 MG, 1/WEEK, SUBCUTANEOUS
     Route: 058
     Dates: start: 20060530
  2. ACIPHEX [Concomitant]
  3. BENICAR [Concomitant]
  4. LOZOL [Concomitant]
  5. KLONOPIN [Concomitant]
  6. REMERON [Concomitant]
  7. MIRAPEX [Concomitant]
  8. CARISOPRODOL [Concomitant]
  9. AVANDIA [Concomitant]

REACTIONS (1)
  - THROMBOCYTOPENIA [None]
